FAERS Safety Report 4667937-X (Version None)
Quarter: 2005Q2

REPORT INFORMATION
  Report Type: 
  Country: None (occurrence: None)
  Receive Date: 20050520
  Receipt Date: 20050509
  Transmission Date: 20051028
  Serious: Yes (Death, Other)
  Sender: FDA-Public Use
  Company Number: CA-BRISTOL-MYERS SQUIBB COMPANY-12961009

PATIENT
  Age: 83 Year
  Sex: Male

DRUGS (9)
  1. WARFARIN SODIUM [Suspect]
     Indication: ATRIAL FIBRILLATION
  2. MOXIFLOXACIN HCL [Interacting]
     Indication: PNEUMONIA BACTERIAL
     Route: 048
  3. VERAPAMIL [Concomitant]
  4. ALBUTEROL [Concomitant]
  5. IPRATROPIUM BROMIDE [Concomitant]
  6. FLUTICASONE PROPIONATE [Concomitant]
  7. PREDNISONE [Concomitant]
  8. THEOPHYLLINE [Concomitant]
  9. OXAZEPAM [Concomitant]

REACTIONS (10)
  - BRONCHITIS [None]
  - CHRONIC OBSTRUCTIVE PULMONARY DISEASE [None]
  - DRUG INTERACTION [None]
  - GASTROINTESTINAL HAEMORRHAGE [None]
  - HAEMATEMESIS [None]
  - HAEMOGLOBIN DECREASED [None]
  - INTERNATIONAL NORMALISED RATIO INCREASED [None]
  - OCCULT BLOOD POSITIVE [None]
  - PNEUMONIA BACTERIAL [None]
  - UPPER GASTROINTESTINAL HAEMORRHAGE [None]
